FAERS Safety Report 24366410 (Version 1)
Quarter: 2024Q3

REPORT INFORMATION
  Report Type: Report from Study
  Country: US (occurrence: US)
  Receive Date: 20240926
  Receipt Date: 20240926
  Transmission Date: 20241016
  Serious: Yes (Other)
  Sender: ROCHE
  Company Number: US-ROCHE-10000084667

PATIENT
  Sex: Female

DRUGS (1)
  1. OCREVUS [Suspect]
     Active Substance: OCRELIZUMAB
     Indication: Relapsing multiple sclerosis
     Route: 065
     Dates: start: 202208

REACTIONS (8)
  - Anaphylactic shock [Unknown]
  - Rash [Unknown]
  - Pharyngeal swelling [Unknown]
  - Dyspnoea [Unknown]
  - Palpitations [Unknown]
  - Panic attack [Unknown]
  - Pruritus [Unknown]
  - Anxiety [Unknown]

NARRATIVE: CASE EVENT DATE: 20240301
